FAERS Safety Report 7363621-2 (Version None)
Quarter: 2011Q1

REPORT INFORMATION
  Report Type: 
  Country: None (occurrence: None)
  Receive Date: 20110321
  Receipt Date: 20110314
  Transmission Date: 20110831
  Serious: Yes (Hospitalization, Other)
  Sender: FDA-Public Use
  Company Number: US-PFIZER INC-2011055815

PATIENT
  Age: 38 Year
  Sex: Female

DRUGS (1)
  1. SIROLIMUS [Suspect]
     Indication: RENAL TRANSPLANT
     Dosage: UNK
     Dates: end: 20110301

REACTIONS (3)
  - DRUG LEVEL INCREASED [None]
  - RESPIRATORY TRACT INFECTION [None]
  - LOBAR PNEUMONIA [None]
